FAERS Safety Report 4761897-9 (Version None)
Quarter: 2005Q3

REPORT INFORMATION
  Report Type: 
  Country: None (occurrence: None)
  Receive Date: 20050831
  Receipt Date: 20050818
  Transmission Date: 20060218
  Serious: Yes (Hospitalization)
  Sender: FDA-Public Use
  Company Number: 2004229450US

PATIENT
  Age: 91 Year
  Sex: Female
  Weight: 59.9 kg

DRUGS (6)
  1. DETROL LA [Suspect]
     Indication: POLLAKIURIA
     Dosage: 4 MG, QD, ORAL
     Route: 048
  2. COUMADIN [Suspect]
     Dosage: ORAL
     Route: 048
     Dates: start: 20030101
  3. K-DUR 10 [Concomitant]
  4. LOPRESSOR [Concomitant]
  5. LASIX [Concomitant]
  6. ALTACE [Concomitant]

REACTIONS (4)
  - DRUG INEFFECTIVE [None]
  - DRY MOUTH [None]
  - FLUID RETENTION [None]
  - HAIR DISORDER [None]
